FAERS Safety Report 5007285-1 (Version None)
Quarter: 2006Q2

REPORT INFORMATION
  Report Type: 
  Country: None (occurrence: None)
  Receive Date: 20060517
  Receipt Date: 20060504
  Transmission Date: 20061013
  Serious: Yes (Hospitalization)
  Sender: FDA-Public Use
  Company Number: 2006PV013260

PATIENT
  Age: 63 Year
  Sex: Male
  Weight: 63.5036 kg

DRUGS (3)
  1. BYETTA [Suspect]
     Indication: DIABETES MELLITUS NON-INSULIN-DEPENDENT
     Dosage: 5 MCG;BID;SC
     Route: 058
     Dates: start: 20050901, end: 20051001
  2. INSULIN INSULATARD NPH NORDISK [Concomitant]
  3. METFORMIN [Concomitant]

REACTIONS (9)
  - ABASIA [None]
  - ARTHRITIS [None]
  - CONDITION AGGRAVATED [None]
  - EXOSTOSIS [None]
  - HYPOAESTHESIA [None]
  - INTERVERTEBRAL DISC PROTRUSION [None]
  - LUMBAR SPINAL STENOSIS [None]
  - MOBILITY DECREASED [None]
  - SPINAL CORD COMPRESSION [None]
